FAERS Safety Report 8279805-5 (Version None)
Quarter: 2012Q2

REPORT INFORMATION
  Report Type: 
  Country: None (occurrence: None)
  Receive Date: 20120412
  Receipt Date: 20120217
  Transmission Date: 20120825
  Serious: No
  Sender: FDA-Public Use
  Company Number: US-ASTRAZENECA-2012SE03722

PATIENT
  Age: 49 Year
  Sex: Male

DRUGS (1)
  1. NEXIUM [Suspect]
     Route: 048

REACTIONS (4)
  - DIZZINESS [None]
  - ACCIDENT AT WORK [None]
  - LIGAMENT SPRAIN [None]
  - HEADACHE [None]
